FAERS Safety Report 19879570 (Version 1)
Quarter: 2021Q3

REPORT INFORMATION
  Report Type: Spontaneous
  Country: FR (occurrence: FR)
  Receive Date: 20210924
  Receipt Date: 20210924
  Transmission Date: 20211014
  Serious: Yes (Other)
  Sender: FDA-Public Use
  Company Number: FR-TEVA-2021-FR-1956239

PATIENT
  Age: 21 Year
  Sex: Male

DRUGS (5)
  1. DEXTROMETHORPHANE BASE [Suspect]
     Active Substance: DEXTROMETHORPHAN
     Dates: start: 20210710, end: 20210710
  2. TRAMADOL BASE [Suspect]
     Active Substance: TRAMADOL
     Dates: start: 20210710, end: 20210710
  3. CHLORHYDRATE D HYDROXYZINE [Suspect]
     Active Substance: HYDROXYZINE HYDROCHLORIDE
     Dates: start: 20210710, end: 20210710
  4. ALCOOL ETHYLIQUE [Suspect]
     Active Substance: ALCOHOL
     Route: 048
     Dates: start: 20210710, end: 20210710
  5. COCAINE [Suspect]
     Active Substance: COCAINE
     Dates: start: 20210710, end: 20210710

REACTIONS (5)
  - Drug abuse [Unknown]
  - Disorientation [Recovered/Resolved]
  - Hallucination, visual [Unknown]
  - Loss of consciousness [Recovered/Resolved]
  - Dysarthria [Unknown]

NARRATIVE: CASE EVENT DATE: 20210710
